FAERS Safety Report 7065092-2 (Version None)
Quarter: 2010Q4

REPORT INFORMATION
  Report Type: 
  Country: None (occurrence: None)
  Receive Date: 20101027
  Receipt Date: 19890828
  Transmission Date: 20110411
  Serious: Yes (Death, Life-Threatening)
  Sender: FDA-Public Use
  Company Number: JP-ROCHE-900900023001

PATIENT
  Sex: Female
  Weight: 36 kg

DRUGS (5)
  1. CEFTRIAXONE SODIUM [Suspect]
     Indication: PNEUMONIA
     Route: 042
     Dates: start: 19890118, end: 19890216
  2. CITICOLINE [Concomitant]
     Route: 042
     Dates: start: 19890118
  3. DIGOXIN [Concomitant]
     Route: 048
     Dates: start: 19880806, end: 19890212
  4. DILAZEP DIHYDROCHLORIDE [Concomitant]
     Route: 048
     Dates: start: 19880504, end: 19890212
  5. VALPROATE SODIUM [Concomitant]
     Route: 048
     Dates: start: 19880707, end: 19890301

REACTIONS (2)
  - AGRANULOCYTOSIS [None]
  - CARDIAC FAILURE [None]
